FAERS Safety Report 17484807 (Version 1)
Quarter: 2020Q1

REPORT INFORMATION
  Report Type: Spontaneous
  Country: FR (occurrence: FR)
  Receive Date: 20200302
  Receipt Date: 20200302
  Transmission Date: 20200409
  Serious: Yes (Other)
  Sender: FDA-Public Use
  Company Number: FR-MYLANLABS-2020M1022233

PATIENT
  Age: 87 Year
  Sex: Female
  Weight: 51.4 kg

DRUGS (5)
  1. LEVETIRACETAM MYLAN PHARMA 1000 MG, COMPRIM? PELLICUL? [Suspect]
     Active Substance: LEVETIRACETAM
     Indication: POST STROKE EPILEPSY
     Dosage: 2000 MILLIGRAM, QD
     Route: 048
     Dates: start: 20191116
  2. PANTOPRAZOLE [Concomitant]
     Active Substance: PANTOPRAZOLE
     Indication: PRODUCT USED FOR UNKNOWN INDICATION
     Dosage: 40 MILLIGRAM, QD
     Route: 048
     Dates: start: 201901
  3. TRAMADOL. [Concomitant]
     Active Substance: TRAMADOL
     Indication: PAIN
     Dosage: PRISE ? LA DEMANDE DEPUIS 2010
     Route: 048
     Dates: start: 2010
  4. LEVETIRACETAM MYLAN PHARMA 500 MG, COMPRIM? PELLICUL? [Suspect]
     Active Substance: LEVETIRACETAM
     Indication: POST STROKE EPILEPSY
     Dosage: 1000 MILLIGRAM, QD
     Route: 048
     Dates: start: 2014, end: 20190924
  5. LEVETIRACETAM MYLAN PHARMA [Suspect]
     Active Substance: LEVETIRACETAM
     Indication: POST STROKE EPILEPSY
     Dosage: 1500 MILLIGRAM, QD
     Route: 048
     Dates: start: 20190925, end: 20191115

REACTIONS (1)
  - Hallucination, visual [Not Recovered/Not Resolved]

NARRATIVE: CASE EVENT DATE: 201911
